FAERS Safety Report 16041005 (Version 1)
Quarter: 2019Q1

REPORT INFORMATION
  Report Type: Spontaneous
  Country: US (occurrence: US)
  Receive Date: 20190306
  Receipt Date: 20190306
  Transmission Date: 20190418
  Serious: No
  Sender: FDA-Public Use
  Company Number: US-AKORN PHARMACEUTICALS-2018AKN02017

PATIENT
  Age: 50 Year
  Sex: Female
  Weight: 72.4 kg

DRUGS (7)
  1. MYORISAN [Suspect]
     Active Substance: ISOTRETINOIN
     Dosage: 20 MG, 2X/DAY
     Route: 048
     Dates: start: 20180916, end: 201810
  2. MYORISAN [Suspect]
     Active Substance: ISOTRETINOIN
     Indication: ACNE
     Dosage: 40 MG, 1X/DAY EVERY MORNING
     Route: 048
     Dates: start: 20180827, end: 20180906
  3. MYORISAN [Suspect]
     Active Substance: ISOTRETINOIN
     Dosage: 20 MG, 1X/DAY
     Route: 048
     Dates: start: 20180910, end: 20180916
  4. BIOTIN [Concomitant]
     Active Substance: BIOTIN
  5. VITAMIN D [Concomitant]
     Active Substance: CHOLECALCIFEROL
  6. MOTRIN [Concomitant]
     Active Substance: IBUPROFEN
  7. MYORISAN [Suspect]
     Active Substance: ISOTRETINOIN
     Dosage: 20 MG, 1X/DAY EVERY EVENING
     Route: 048
     Dates: start: 20180827, end: 20180906

REACTIONS (5)
  - Off label use [Recovered/Resolved]
  - Dry skin [Recovered/Resolved]
  - Blood triglycerides increased [Recovered/Resolved]
  - Arthralgia [Recovering/Resolving]
  - Pruritus [Recovered/Resolved]

NARRATIVE: CASE EVENT DATE: 2018
